FAERS Safety Report 10110566 (Version 2)
Quarter: 2014Q3

REPORT INFORMATION
  Report Type: Spontaneous
  Country: US (occurrence: None)
  Receive Date: 20140421
  Receipt Date: 20140722
  Transmission Date: 20150326
  Serious: Yes (Other)
  Sender: FDA-Public Use
  Company Number: AEGR000362

PATIENT
  Age: 80 Year
  Sex: Female
  Weight: 77.1 kg

DRUGS (7)
  1. SYNTHROID [Concomitant]
     Active Substance: LEVOTHYROXINE SODIUM
  2. CYTOMEL (LIOTHYRONINE SODIUM) [Concomitant]
  3. JUXTAPID [Suspect]
     Active Substance: LOMITAPIDE MESYLATE
     Indication: HYPERCHOLESTEROLAEMIA
     Route: 048
     Dates: start: 20131117, end: 201403
  4. PRILOSEC (OMEPRAZOLE) [Concomitant]
     Active Substance: OMEPRAZOLE MAGNESIUM
  5. MULTIVITAMIN (VITAMINS NOS) [Concomitant]
  6. CALCIUM (CALCIUM) [Concomitant]
     Active Substance: CALCIUM
  7. ALLEGRA (FENOFENADINE HYDROCHLORIDE) [Concomitant]

REACTIONS (5)
  - Off label use [None]
  - Pain [None]
  - Abdominal discomfort [None]
  - Diarrhoea [None]
  - Gastrooesophageal reflux disease [None]

NARRATIVE: CASE EVENT DATE: 20131117
